FAERS Safety Report 7247730-4 (Version None)
Quarter: 2011Q1

REPORT INFORMATION
  Report Type: 
  Country: None (occurrence: None)
  Receive Date: 20110127
  Receipt Date: 20110118
  Transmission Date: 20110831
  Serious: Yes (Hospitalization)
  Sender: FDA-Public Use
  Company Number: DE-ELI_LILLY_AND_COMPANY-DE201101003837

PATIENT
  Age: 65 Year
  Sex: Male
  Weight: 99 kg

DRUGS (8)
  1. EZETROL [Concomitant]
     Indication: HYPERLIPIDAEMIA
     Dosage: 10 MG, DAILY (1/D)
     Route: 048
     Dates: start: 20040101
  2. ASPIRIN [Concomitant]
     Dosage: 100 MG, UNK
     Dates: start: 19860101
  3. SIMVASTATIN [Concomitant]
     Indication: HYPERLIPIDAEMIA
     Dosage: 20 MG, DAILY (1/D)
     Route: 048
     Dates: start: 20040101
  4. METOPROLOL [Concomitant]
     Indication: CORONARY ARTERY DISEASE
     Dosage: 47.5 MG, DAILY (1/D)
     Route: 048
     Dates: start: 20040101
  5. ISCOVER [Concomitant]
     Dosage: 75 MG, UNK
     Dates: start: 20101104
  6. PRASUGREL HYDROCHLORIDE [Suspect]
     Indication: ACUTE CORONARY SYNDROME
     Dosage: 10 MG, UNK
     Route: 048
     Dates: start: 20101222, end: 20110107
  7. ISOSORBIDE DINITRATE [Concomitant]
     Dosage: 120 MG, DAILY (1/D)
     Route: 048
     Dates: start: 20110103, end: 20110106
  8. RAMIPRIL [Concomitant]
     Indication: HYPERTENSION
     Dosage: 2.5 MG, 2/D
     Route: 048
     Dates: start: 20040101

REACTIONS (1)
  - CHEST PAIN [None]
